FAERS Safety Report 9165469 (Version 1)
Quarter: 2013Q1

REPORT INFORMATION
  Report Type: Spontaneous
  Country: US (occurrence: None)
  Receive Date: 20130301
  Receipt Date: 20130301
  Transmission Date: 20140127
  Serious: Yes (Hospitalization)
  Sender: FDA-Public Use
  Company Number: DKLU1089131

PATIENT
  Age: 57 Year
  Sex: Male

DRUGS (1)
  1. SABRIL (TABLET) (SABRIL) (VIGABATRIN) (500 MG, TABLET) [Suspect]
     Indication: EPILEPSY
     Dosage: 500 MG MILLIGRAM (S), 2 IN 1 D
     Dates: start: 20130121

REACTIONS (1)
  - Surgery [None]
